FAERS Safety Report 12841878 (Version 1)
Quarter: 2016Q4

REPORT INFORMATION
  Report Type: Report from Study
  Country: CA (occurrence: CA)
  Receive Date: 20161012
  Receipt Date: 20161012
  Transmission Date: 20170207
  Serious: Yes (Hospitalization)
  Sender: FDA-Public Use
  Company Number: CA-BIOGEN-2016BI00269005

PATIENT
  Age: 55 Year
  Sex: Female

DRUGS (2)
  1. FAMPYRA [Suspect]
     Active Substance: DALFAMPRIDINE
     Indication: GAIT DISTURBANCE
     Route: 048
     Dates: start: 20130724
  2. CIPIMOD FOR SPMS [Concomitant]
     Indication: SECONDARY PROGRESSIVE MULTIPLE SCLEROSIS
     Route: 065

REACTIONS (7)
  - Urinary tract infection [Unknown]
  - Cough [Not Recovered/Not Resolved]
  - Hepatic enzyme increased [Recovered/Resolved]
  - Wheezing [Not Recovered/Not Resolved]
  - Respiratory disorder [Unknown]
  - Cystitis [Unknown]
  - Dyspnoea [Not Recovered/Not Resolved]

NARRATIVE: CASE EVENT DATE: 2013
